FAERS Safety Report 10662591 (Version 1)
Quarter: 2014Q4

REPORT INFORMATION
  Report Type: Spontaneous
  Country: US (occurrence: None)
  Receive Date: 20141217
  Receipt Date: 20141217
  Transmission Date: 20150529
  Serious: Yes (Hospitalization, Disabling)
  Sender: FDA-Public Use
  Company Number: None

PATIENT
  Age: 40 Year
  Sex: Female
  Weight: 83.92 kg

DRUGS (2)
  1. DEPO-MEDROL [Suspect]
     Active Substance: METHYLPREDNISOLONE ACETATE
     Indication: CERVICAL SPINAL STENOSIS
     Dates: start: 20131212
  2. DEPO-MEDROL [Suspect]
     Active Substance: METHYLPREDNISOLONE ACETATE
     Indication: SPINAL OSTEOARTHRITIS
     Dates: start: 20131212

REACTIONS (13)
  - Visual impairment [None]
  - Movement disorder [None]
  - Quality of life decreased [None]
  - Migraine with aura [None]
  - Seizure [None]
  - Heart rate increased [None]
  - Blood pressure increased [None]
  - Loss of consciousness [None]
  - Off label use [None]
  - Dyspnoea [None]
  - Balance disorder [None]
  - Vision blurred [None]
  - Communication disorder [None]

NARRATIVE: CASE EVENT DATE: 20131212
